FAERS Safety Report 19442127 (Version 1)
Quarter: 2021Q2

REPORT INFORMATION
  Report Type: Report from Study
  Country: DE (occurrence: DE)
  Receive Date: 20210621
  Receipt Date: 20210621
  Transmission Date: 20210717
  Serious: Yes (Hospitalization, Other)
  Sender: FDA-Public Use
  Company Number: DE-ACCORD-229153

PATIENT
  Age: 36 Year
  Sex: Female
  Weight: 71.8 kg

DRUGS (9)
  1. BISOHEXAL [Concomitant]
     Active Substance: BISOPROLOL FUMARATE
     Route: 065
     Dates: start: 20111220
  2. METHOTREXATE. [Suspect]
     Active Substance: METHOTREXATE
     Indication: CROHN^S DISEASE
     Route: 048
     Dates: start: 20151020, end: 20210329
  3. PANTOZOL [Concomitant]
     Active Substance: PANTOPRAZOLE SODIUM
     Route: 065
     Dates: start: 20111220
  4. SALBUTAMOL [Concomitant]
     Active Substance: ALBUTEROL
     Route: 065
     Dates: start: 20210129
  5. FERACCRU [Concomitant]
     Active Substance: FERRIC MALTOL
     Route: 065
     Dates: start: 20200226
  6. LEVONORGESTREL. [Concomitant]
     Active Substance: LEVONORGESTREL
     Route: 065
     Dates: start: 20200128
  7. VITAMIN D [Concomitant]
     Active Substance: VITAMIN D NOS
     Route: 065
     Dates: start: 20200228
  8. FALITHROM [Concomitant]
     Active Substance: PHENPROCOUMON
     Route: 065
     Dates: start: 2010
  9. METOCLOPRAMIDE. [Concomitant]
     Active Substance: METOCLOPRAMIDE
     Route: 065
     Dates: start: 20200101

REACTIONS (1)
  - Breast cancer [Not Recovered/Not Resolved]

NARRATIVE: CASE EVENT DATE: 20210324
